FAERS Safety Report 25609116 (Version 3)
Quarter: 2025Q3

REPORT INFORMATION
  Report Type: Spontaneous
  Country: US (occurrence: US)
  Receive Date: 20250727
  Receipt Date: 20250930
  Transmission Date: 20251021
  Serious: No
  Sender: LUPIN
  Company Number: US-LUPIN PHARMACEUTICALS INC.-2025-06666

PATIENT
  Age: 29 Year

DRUGS (3)
  1. TOLVAPTAN [Suspect]
     Active Substance: TOLVAPTAN
     Indication: Product used for unknown indication
     Dosage: 45 MILLIGRAM, QD (IN MORNING)
  2. TOLVAPTAN [Suspect]
     Active Substance: TOLVAPTAN
     Dosage: 30 MILLIGRAM, QD IN MORNING
  3. TOLVAPTAN [Suspect]
     Active Substance: TOLVAPTAN
     Indication: Product used for unknown indication
     Dosage: 15 MILLIGRAM, QD

REACTIONS (5)
  - Polyuria [Unknown]
  - Urine osmolarity decreased [Unknown]
  - Pollakiuria [Unknown]
  - Urine analysis abnormal [Unknown]
  - Abdominal pain upper [Unknown]
